FAERS Safety Report 24891685 (Version 1)
Quarter: 2025Q1

REPORT INFORMATION
  Report Type: Spontaneous
  Country: FR (occurrence: FR)
  Receive Date: 20250127
  Receipt Date: 20250127
  Transmission Date: 20250408
  Serious: No
  Sender: EMERGENT BIOSOLUTIONS
  Company Number: FRANCE-EMERGENT BIOSOLUTIONS-25000012

PATIENT
  Age: 32 Year

DRUGS (2)
  1. BAT [Suspect]
     Active Substance: EQUINE BOTULINUM NEUROTOXIN A/B/C/D/E/F/G IMMUNE FAB2
     Indication: Botulism
     Route: 065
  2. BAT [Suspect]
     Active Substance: EQUINE BOTULINUM NEUROTOXIN A/B/C/D/E/F/G IMMUNE FAB2
     Route: 065
     Dates: start: 20250117

REACTIONS (2)
  - Product administration error [Unknown]
  - Product storage error [Unknown]
